FAERS Safety Report 21591491 (Version 3)
Quarter: 2022Q4

REPORT INFORMATION
  Report Type: Spontaneous
  Country: US (occurrence: US)
  Receive Date: 20221114
  Receipt Date: 20221221
  Transmission Date: 20230112
  Serious: Yes (Other)
  Sender: FDA-Public Use
  Company Number: US-BAYER-2022A152921

PATIENT
  Age: 23 Year
  Sex: Female
  Weight: 80.3 kg

DRUGS (3)
  1. MIRENA [Suspect]
     Active Substance: LEVONORGESTREL
     Indication: Contraception
     Dosage: 20?G/DAY
     Route: 015
     Dates: start: 202203, end: 20221024
  2. MIRENA [Suspect]
     Active Substance: LEVONORGESTREL
     Indication: Heavy menstrual bleeding
  3. METRONIDAZOLE [Concomitant]
     Active Substance: METRONIDAZOLE
     Dosage: UNK
     Route: 042

REACTIONS (6)
  - Genital haemorrhage [None]
  - Pelvic discomfort [None]
  - Abdominal pain lower [None]
  - Vaginal discharge [None]
  - Device dislocation [None]
  - Dyspareunia [None]

NARRATIVE: CASE EVENT DATE: 20220601
